FAERS Safety Report 10048054 (Version 2)
Quarter: 2014Q2

REPORT INFORMATION
  Report Type: Spontaneous
  Country: RU (occurrence: RU)
  Receive Date: 20140331
  Receipt Date: 20140417
  Transmission Date: 20141212
  Serious: Yes (Death, Other)
  Sender: FDA-Public Use
  Company Number: RU-PFIZER INC-2014086393

PATIENT
  Age: 56 Year
  Sex: Female
  Weight: 85 kg

DRUGS (5)
  1. TYGACIL [Suspect]
     Indication: CELLULITIS
     Dosage: 50 MG, 2X/DAY
     Route: 042
     Dates: start: 20130711, end: 20130716
  2. TYGACIL [Suspect]
     Indication: PERITONITIS
  3. TYGACIL [Suspect]
     Indication: BACTERAEMIA
  4. TYGACIL [Suspect]
     Indication: SEPSIS
  5. TYGACIL [Suspect]
     Indication: SUPERINFECTION

REACTIONS (2)
  - Peritonitis [Fatal]
  - Disease progression [Fatal]
